FAERS Safety Report 14412657 (Version 7)
Quarter: 2019Q1

REPORT INFORMATION
  Report Type: Spontaneous
  Country: CA (occurrence: CA)
  Receive Date: 20180119
  Receipt Date: 20190319
  Transmission Date: 20190417
  Serious: Yes (Hospitalization, Other)
  Sender: FDA-Public Use
  Company Number: CA-CELLTRION INC.-2017CA003548

PATIENT

DRUGS (17)
  1. CALCIUM [Concomitant]
     Active Substance: CALCIUM
     Dosage: UNK
  2. SALOFALK [Concomitant]
     Active Substance: MESALAMINE
     Dosage: UNK
  3. ADVAIR HFA [Concomitant]
     Active Substance: FLUTICASONE PROPIONATE\SALMETEROL XINAFOATE
     Dosage: UNK, AS NEEDED
  4. INFLECTRA [Suspect]
     Active Substance: INFLIXIMAB-DYYB
     Dosage: 5 MG/KG, (EVERY 6 WEKS)
     Route: 042
     Dates: start: 20180704
  5. BRICANYL [Concomitant]
     Active Substance: TERBUTALINE SULFATE
     Dosage: UNK
  6. INFLECTRA [Suspect]
     Active Substance: INFLIXIMAB-DYYB
     Dosage: 5 MG/KG, (500 MG) (EVERY 6 WEEKS)
     Route: 042
  7. PREDNISONE. [Concomitant]
     Active Substance: PREDNISONE
     Dosage: 40 MG, (TAPERING DOSE)
     Dates: start: 2016
  8. ENTOCORT [Concomitant]
     Active Substance: BUDESONIDE
     Dosage: 9 MG, DAILY
  9. INFLECTRA [Suspect]
     Active Substance: INFLIXIMAB-DYYB
     Indication: CROHN^S DISEASE
     Dosage: 500 MG, EVERY 0, 2, 6 WEEKS, THEN EVERY 8 WEEKS)
     Route: 042
     Dates: start: 20170301
  10. INFLECTRA [Suspect]
     Active Substance: INFLIXIMAB-DYYB
     Dosage: 500 MG, (EVERY 6 WEEKS)
     Route: 042
     Dates: start: 20180116
  11. INFLECTRA [Suspect]
     Active Substance: INFLIXIMAB-DYYB
     Dosage: 5 MG/KG, (EVERY 6 WEKS)
     Route: 042
     Dates: start: 20180810
  12. INFLECTRA [Suspect]
     Active Substance: INFLIXIMAB-DYYB
     Dosage: 5 MG/KG, (EVERY 6 WEKS)
     Route: 042
     Dates: start: 20190305
  13. INFLECTRA [Suspect]
     Active Substance: INFLIXIMAB-DYYB
     Dosage: 500 MG, EVERY 0, 2,  6 WEEKS, THEN EVERY 8 WEEKS)
     Route: 042
     Dates: end: 20171122
  14. INFLECTRA [Suspect]
     Active Substance: INFLIXIMAB-DYYB
     Dosage: 500 MG,  (EVERY 6 WEEKS)
     Route: 042
     Dates: start: 20180410
  15. INFLECTRA [Suspect]
     Active Substance: INFLIXIMAB-DYYB
     Dosage: 5 MG/KG,  (EVERY 6 WEKS)
     Route: 042
     Dates: start: 20181030
  16. INFLECTRA [Suspect]
     Active Substance: INFLIXIMAB-DYYB
     Dosage: 5 MG/KG, (EVERY 6 WEKS)
     Route: 042
     Dates: start: 20181214
  17. INFLECTRA [Suspect]
     Active Substance: INFLIXIMAB-DYYB
     Dosage: 5 MG/KG, (EVERY 6 WEKS)
     Route: 042
     Dates: start: 20190122

REACTIONS (19)
  - Haematochezia [Not Recovered/Not Resolved]
  - Anal fistula [Unknown]
  - Asthma [Not Recovered/Not Resolved]
  - Acne [Unknown]
  - Abdominal pain upper [Unknown]
  - Nasal congestion [Recovering/Resolving]
  - Respiratory rate decreased [Unknown]
  - Nasopharyngitis [Not Recovered/Not Resolved]
  - Fatigue [Recovering/Resolving]
  - Product use issue [Unknown]
  - Cellulitis [Recovered/Resolved]
  - Lung disorder [Unknown]
  - Dyspnoea [Not Recovered/Not Resolved]
  - Malaise [Unknown]
  - Productive cough [Unknown]
  - Pulmonary fibrosis [Not Recovered/Not Resolved]
  - Cough [Unknown]
  - Therapy non-responder [Recovering/Resolving]
  - Product use issue [Unknown]

NARRATIVE: CASE EVENT DATE: 20170315
